FAERS Safety Report 5444440-0 (Version None)
Quarter: 2007Q3

REPORT INFORMATION
  Report Type: 
  Country: None (occurrence: None)
  Receive Date: 20070830
  Receipt Date: 20070816
  Transmission Date: 20080115
  Serious: Yes (Hospitalization)
  Sender: FDA-Public Use
  Company Number: B0484499A

PATIENT
  Age: 8 Year
  Sex: Female
  Weight: 29.1209 kg

DRUGS (6)
  1. ALBUTEROL SULFATE [Suspect]
     Indication: ASTHMA
     Dosage: INHALED
     Route: 055
  2. IPRATROPIUM BROMIDE [Suspect]
     Indication: ASTHMA
     Dosage: INHALED
     Route: 055
  3. DEXAMETHASONE [Suspect]
     Indication: ASTHMA
     Dosage: .2 MG/KG / SINGLE DOSE / INTRAVENOUS
     Route: 042
  4. SODIUM CHLORIDE [Concomitant]
  5. INTRAVENOUS FLUID (S) [Concomitant]
  6. PREDNISOLONE [Concomitant]

REACTIONS (6)
  - BLOOD PRESSURE DIASTOLIC DECREASED [None]
  - GENERAL PHYSICAL HEALTH DETERIORATION [None]
  - HYPERGLYCAEMIA [None]
  - METABOLIC ACIDOSIS [None]
  - POLYURIA [None]
  - SOMNOLENCE [None]
